FAERS Safety Report 5404143-5 (Version None)
Quarter: 2007Q3

REPORT INFORMATION
  Report Type: 
  Country: None (occurrence: None)
  Receive Date: 20070731
  Receipt Date: 20070719
  Transmission Date: 20080115
  Serious: Yes (Hospitalization)
  Sender: FDA-Public Use
  Company Number: 1-15124516-MED07149

PATIENT
  Age: 24 Year
  Sex: Male
  Weight: 61.2356 kg

DRUGS (3)
  1. BACTRIM DS [Suspect]
     Indication: ILL-DEFINED DISORDER
     Dosage: 160MG/800MG DAILY, ORAL
     Route: 048
     Dates: start: 20070630, end: 20070714
  2. BACTRIM DS [Suspect]
     Indication: PNEUMOCYSTIS JIROVECI PNEUMONIA
     Dosage: 160MG/800MG DAILY, ORAL
     Route: 048
     Dates: start: 20070630, end: 20070714
  3. FLUCONAZOLE [Suspect]
     Dosage: ONCE DAILY, ORAL
     Route: 048
     Dates: start: 20070629, end: 20070714

REACTIONS (7)
  - ANAPHYLACTIC REACTION [None]
  - DIARRHOEA [None]
  - DRUG DOSE OMISSION [None]
  - PLATELET COUNT DECREASED [None]
  - REFUSAL OF TREATMENT BY PATIENT [None]
  - STEVENS-JOHNSON SYNDROME [None]
  - VOMITING [None]
